FAERS Safety Report 4638888-1 (Version None)
Quarter: 2005Q2

REPORT INFORMATION
  Report Type: 
  Country: None (occurrence: None)
  Receive Date: 20050414
  Receipt Date: 20050414
  Transmission Date: 20051028
  Serious: No
  Sender: FDA-Public Use
  Company Number: None

PATIENT
  Sex: Male

DRUGS (3)
  1. CARDURA [Suspect]
     Indication: CORONARY ARTERY DISEASE
     Dosage: 1 HS PO
     Route: 048
     Dates: start: 20040814
  2. CARDURA [Suspect]
     Indication: HYPERTENSION
     Dosage: 1 HS PO
     Route: 048
     Dates: start: 20040814
  3. CARDURA [Suspect]
     Indication: RENAL FAILURE
     Dosage: 1 HS PO
     Route: 048
     Dates: start: 20040814

REACTIONS (1)
  - DRUG HYPERSENSITIVITY [None]
